FAERS Safety Report 16918738 (Version 1)
Quarter: 2019Q4

REPORT INFORMATION
  Report Type: Spontaneous
  Country: US (occurrence: US)
  Receive Date: 20191014
  Receipt Date: 20191014
  Transmission Date: 20200122
  Serious: Yes (Disabling)
  Sender: FDA-Public Use
  Company Number: None

PATIENT
  Age: 49 Year
  Sex: Female
  Weight: 79.2 kg

DRUGS (5)
  1. PANTOPROZOLE [Concomitant]
  2. BIOTIN [Concomitant]
     Active Substance: BIOTIN
  3. VITAMIN E [Concomitant]
     Active Substance: .ALPHA.-TOCOPHEROL
  4. VALSARTAN. [Concomitant]
     Active Substance: VALSARTAN
  5. NEURONTIN [Suspect]
     Active Substance: GABAPENTIN
     Indication: NEURALGIA
     Dosage: ?          QUANTITY:1 CAPSULE(S);?
     Route: 048
     Dates: start: 20191001, end: 20191006

REACTIONS (7)
  - Insomnia [None]
  - Joint swelling [None]
  - Feeling abnormal [None]
  - Eye pruritus [None]
  - Micturition urgency [None]
  - Lacrimation increased [None]
  - Fluid retention [None]

NARRATIVE: CASE EVENT DATE: 20191005
